FAERS Safety Report 5574591-1 (Version None)
Quarter: 2007Q4

REPORT INFORMATION
  Report Type: 
  Country: None (occurrence: None)
  Receive Date: 20071227
  Receipt Date: 20071214
  Transmission Date: 20080405
  Serious: Yes (Hospitalization, Other)
  Sender: FDA-Public Use
  Company Number: US-AMGEN-QUU251508

PATIENT
  Sex: Female
  Weight: 92.7 kg

DRUGS (11)
  1. ENBREL [Suspect]
     Indication: PSORIATIC ARTHROPATHY
     Route: 058
     Dates: start: 20071101
  2. ENBREL [Suspect]
     Indication: PSORIASIS
  3. PLAQUENIL [Concomitant]
     Route: 048
     Dates: start: 20060501
  4. METHOTREXATE [Concomitant]
     Route: 048
     Dates: start: 20070301
  5. TOPAMAX [Concomitant]
     Route: 048
  6. NORCO [Concomitant]
     Route: 048
  7. LYRICA [Concomitant]
     Route: 048
     Dates: start: 20071001, end: 20071114
  8. FOLIC ACID [Concomitant]
     Route: 048
  9. FLEXERIL [Concomitant]
     Route: 048
  10. MORPHINE [Concomitant]
     Route: 048
  11. TRIAMCINOLONE [Concomitant]

REACTIONS (13)
  - BACK PAIN [None]
  - BURSITIS [None]
  - DIZZINESS [None]
  - EYE MOVEMENT DISORDER [None]
  - HEADACHE [None]
  - HEMIPARESIS [None]
  - HYPOAESTHESIA [None]
  - INNER EAR DISORDER [None]
  - LETHARGY [None]
  - MUSCULAR WEAKNESS [None]
  - NAUSEA [None]
  - PAIN [None]
  - SYNCOPE [None]
